FAERS Safety Report 5040681-5 (Version None)
Quarter: 2006Q2

REPORT INFORMATION
  Report Type: 
  Country: None (occurrence: None)
  Receive Date: 20060629
  Receipt Date: 20060629
  Transmission Date: 20061013
  Serious: No
  Sender: FDA-Public Use
  Company Number: None

PATIENT
  Sex: Female
  Weight: 58.9676 kg

DRUGS (1)
  1. MINOCYCLINE HCL [Suspect]
     Indication: ACNE
     Dosage: ONE CAPSULE TWICE DAILY BY MOUTH
     Route: 048
     Dates: start: 20050707, end: 20060626

REACTIONS (1)
  - PIGMENTATION DISORDER [None]
